FAERS Safety Report 8956643 (Version 2)
Quarter: 2012Q4

REPORT INFORMATION
  Report Type: 
  Country: CA (occurrence: CA)
  Receive Date: 20121210
  Receipt Date: 20121212
  Transmission Date: 20130627
  Serious: Yes (Death)
  Sender: FDA-Public Use
  Company Number: CA-JNJFOC-20121202440

PATIENT

DRUGS (6)
  1. DOXORUBICIN [Suspect]
     Indication: HODGKIN^S DISEASE
     Route: 042
  2. BLEOMYCIN [Suspect]
     Indication: HODGKIN^S DISEASE
     Route: 065
  3. VINBLASTINE [Suspect]
     Indication: HODGKIN^S DISEASE
     Route: 065
  4. DACARBAZINE [Suspect]
     Indication: HODGKIN^S DISEASE
     Route: 065
  5. ANTI-CANCER DRUG [Suspect]
     Indication: HODGKIN^S DISEASE
     Route: 065
  6. ALL OTHER THERAPEUTICS [Concomitant]
     Indication: PRODUCT USED FOR UNKNOWN INDICATION
     Route: 065

REACTIONS (8)
  - Hodgkin^s disease [Fatal]
  - Toxicity to various agents [Fatal]
  - Metastasis [Fatal]
  - Cardiac disorder [Fatal]
  - Respiratory disorder [Fatal]
  - Nervous system disorder [Fatal]
  - Gastrointestinal disorder [Fatal]
  - Death [Fatal]
